FAERS Safety Report 9013693 (Version 2)
Quarter: 2013Q1

REPORT INFORMATION
  Report Type: Report from Study
  Country: JP (occurrence: JP)
  Receive Date: 20130115
  Receipt Date: 20130301
  Transmission Date: 20140127
  Serious: Yes (Other)
  Sender: FDA-Public Use
  Company Number: PHHY2013JP002612

PATIENT
  Age: 72 Year
  Sex: Female
  Weight: 50 kg

DRUGS (3)
  1. AFINITOR [Suspect]
     Indication: PANCREATIC NEUROENDOCRINE TUMOUR
     Dosage: 10 MG,DAILY
     Dates: start: 20120405, end: 20120608
  2. AFINITOR [Suspect]
     Dosage: 10 MG, DAILY
     Dates: start: 20120620, end: 20120718
  3. AZUNOL [Concomitant]
     Indication: PROPHYLAXIS

REACTIONS (7)
  - Renal disorder [Recovering/Resolving]
  - Malaise [Not Recovered/Not Resolved]
  - Stomatitis [Recovering/Resolving]
  - Blood pressure decreased [Unknown]
  - Dysphagia [Unknown]
  - Pancreatic neuroendocrine tumour [Unknown]
  - Malignant neoplasm progression [Unknown]
